FAERS Safety Report 13297161 (Version 1)
Quarter: 2017Q1

REPORT INFORMATION
  Report Type: Spontaneous
  Country: US (occurrence: US)
  Receive Date: 20170303
  Receipt Date: 20170303
  Transmission Date: 20170428
  Serious: Yes (Disabling, Other)
  Sender: FDA-Public Use
  Company Number: None

PATIENT
  Age: 46 Year

DRUGS (2)
  1. ESSURE [Concomitant]
     Active Substance: DEVICE
  2. CHANTIX [Suspect]
     Active Substance: VARENICLINE TARTRATE
     Dosage: ?          QUANTITY:THING?.I N I. .\.;?

REACTIONS (3)
  - Pharyngeal ulceration [None]
  - Throat lesion [None]
  - Nasal septum disorder [None]

NARRATIVE: CASE EVENT DATE: 20070215
